FAERS Safety Report 6693293-1 (Version None)
Quarter: 2010Q2

REPORT INFORMATION
  Report Type: 
  Country: None (occurrence: None)
  Receive Date: 20100422
  Receipt Date: 20100414
  Transmission Date: 20101027
  Serious: Yes (Hospitalization, Other)
  Sender: FDA-Public Use
  Company Number: BR-ABBOTT-10P-020-0618842-00

PATIENT
  Sex: Female
  Weight: 49 kg

DRUGS (12)
  1. HUMIRA [Suspect]
     Indication: RHEUMATOID ARTHRITIS
     Route: 058
     Dates: start: 20080101, end: 20100401
  2. LOSARTAN POTASSIUM [Concomitant]
     Indication: HYPERTENSION
     Route: 048
  3. ENALAPRIL MALEATE [Concomitant]
     Indication: HYPERTENSION
     Route: 048
     Dates: start: 20070101
  4. ATENOLOL [Concomitant]
     Indication: HYPERTENSION
     Route: 048
  5. ATENOLOL AND CHLORTHALIDONE [Concomitant]
     Indication: HYPERTENSION
     Route: 048
  6. ISOSORBIDE MONONITRATE [Concomitant]
     Indication: PROPHYLAXIS
     Route: 048
  7. ISOSORBIDE MONONITRATE [Concomitant]
     Indication: ANGINA PECTORIS
  8. HYDROXYCHLOROQUINE, METHYLPREDNISOLONE, PHENYLBUTAZONE, NIMULSIDE [Concomitant]
     Indication: RHEUMATOID ARTHRITIS
     Dosage: 50MG, 1MG, 60MG, NIMESULIDE 100MG, FLUOXETINE 10MG AND CODEINE 10MG
     Route: 048
  9. ACETYLSALICYLIC ACID [Concomitant]
     Indication: CARDIAC DISORDER
     Route: 048
  10. SIMVASTATIN [Concomitant]
     Indication: PROPHYLAXIS
     Route: 048
     Dates: start: 20060101
  11. SIMVASTATIN [Concomitant]
     Indication: BLOOD CHOLESTEROL INCREASED
  12. PANTOPRAZOLE [Concomitant]
     Indication: PROPHYLAXIS AGAINST GASTROINTESTINAL ULCER
     Route: 048
     Dates: start: 20050101

REACTIONS (9)
  - ANGIOPATHY [None]
  - CARDIOVASCULAR DISORDER [None]
  - ERYTHEMA [None]
  - IMPAIRED HEALING [None]
  - NECROSIS [None]
  - SWELLING [None]
  - VENOUS OCCLUSION [None]
  - WOUND [None]
  - WOUND COMPLICATION [None]
